FAERS Safety Report 6891654-9 (Version None)
Quarter: 2010Q3

REPORT INFORMATION
  Report Type: 
  Country: None (occurrence: None)
  Receive Date: 20100731
  Receipt Date: 20070911
  Transmission Date: 20110219
  Serious: No
  Sender: FDA-Public Use
  Company Number: US-PFIZER INC-2007067134

PATIENT
  Sex: Male
  Weight: 89 kg

DRUGS (3)
  1. CAVERJECT [Suspect]
     Indication: SENSATION OF BLOOD FLOW
     Dates: start: 20070101
  2. CAVERJECT [Suspect]
     Indication: ERECTILE DYSFUNCTION
  3. VIAGRA [Concomitant]
     Indication: POSTOPERATIVE CARE

REACTIONS (1)
  - DRUG INEFFECTIVE [None]
